FAERS Safety Report 24438757 (Version 1)
Quarter: 2024Q4

REPORT INFORMATION
  Report Type: Spontaneous
  Country: US (occurrence: None)
  Receive Date: 20241014
  Receipt Date: 20241014
  Transmission Date: 20250115
  Serious: No
  Sender: Public
  Company Number: None

PATIENT
  Age: 67 Year
  Sex: Male
  Weight: 92.25 kg

DRUGS (3)
  1. CHLORHEXIDINE GLUCONATE [Suspect]
     Active Substance: CHLORHEXIDINE GLUCONATE
     Indication: Blood donation
     Dates: start: 20241010, end: 20241010
  2. MAGNESIUM [Concomitant]
  3. CINNAMON [Concomitant]
     Active Substance: CINNAMON

REACTIONS (4)
  - Application site rash [None]
  - Rash [None]
  - Body temperature increased [None]
  - Pruritus [None]

NARRATIVE: CASE EVENT DATE: 20241010
